FAERS Safety Report 8132032-4 (Version None)
Quarter: 2012Q1

REPORT INFORMATION
  Report Type: 
  Country: None (occurrence: None)
  Receive Date: 20120207
  Receipt Date: 20120124
  Transmission Date: 20120608
  Serious: Yes (Hospitalization, Disabling, Other)
  Sender: FDA-Public Use
  Company Number: JPI-P-016015

PATIENT
  Age: 79 Year
  Sex: Male

DRUGS (6)
  1. POLYETHYLINE GLYCOL [Concomitant]
  2. TRAMADOL HCL [Concomitant]
  3. GABAPENTIN [Concomitant]
  4. XYREM [Suspect]
     Indication: NARCOLEPSY
     Dosage: 8 GM (4 GM, 1 IN 1 D), ORAL
     Route: 048
     Dates: start: 20090212, end: 20110712
  5. OMEPRAZOLE [Concomitant]
  6. TESTOSTERONE [Concomitant]

REACTIONS (6)
  - WOUND DEHISCENCE [None]
  - GASTROINTESTINAL PAIN [None]
  - ABDOMINAL PAIN LOWER [None]
  - INAPPROPRIATE SCHEDULE OF DRUG ADMINISTRATION [None]
  - SEPSIS [None]
  - EYELID OEDEMA [None]
